FAERS Safety Report 11423993 (Version 2)
Quarter: 2015Q3

REPORT INFORMATION
  Report Type: Spontaneous
  Country: AR (occurrence: AR)
  Receive Date: 20150827
  Receipt Date: 20150901
  Transmission Date: 20151125
  Serious: Yes (Other)
  Sender: FDA-Public Use
  Company Number: AR-REGENERON PHARMACEUTICALS, INC.-2015-11954

PATIENT

DRUGS (5)
  1. EYLEA [Suspect]
     Active Substance: AFLIBERCEPT
     Indication: NEOVASCULAR AGE-RELATED MACULAR DEGENERATION
     Dosage: 11 INJECTIONS OF ANTIVEGF ON THE RIGHT EYE (IN THE PREVIOUS TWO YEARS, FREQUENCY UNSPECIFIED)
     Dates: start: 2007, end: 2009
  2. AVASTIN [Concomitant]
     Active Substance: BEVACIZUMAB
     Indication: NEOVASCULAR AGE-RELATED MACULAR DEGENERATION
     Dosage: 4 DF, RECEIVED 4 INJECTIONS IN RIGHT EYE AT UNSPECIFIED FREQUENCY
  3. EYLEA [Suspect]
     Active Substance: AFLIBERCEPT
     Dosage: LEFT EYE (FREQUENCY UNSPECIFIED)
     Dates: start: 201507
  4. AVASTIN [Concomitant]
     Active Substance: BEVACIZUMAB
     Dosage: 3 INJECTIONS ON LEFT EYE AT UNSPECIFIED FREQUENCY
     Dates: start: 201401
  5. EYLEA [Suspect]
     Active Substance: AFLIBERCEPT
     Dosage: 7 INJECTIONS LEFT EYE (FREQUENCY UNSPECIFIED)
     Dates: start: 201504

REACTIONS (7)
  - Retinal degeneration [Unknown]
  - Non-infectious endophthalmitis [Recovered/Resolved]
  - Conjunctivitis [Unknown]
  - Retinal haemorrhage [Unknown]
  - Subretinal fibrosis [Unknown]
  - Retinal oedema [Unknown]
  - Subretinal fibrosis [Unknown]

NARRATIVE: CASE EVENT DATE: 2012
